FAERS Safety Report 4780633-3 (Version None)
Quarter: 2005Q3

REPORT INFORMATION
  Report Type: 
  Country: None (occurrence: None)
  Receive Date: 20050926
  Receipt Date: 20050912
  Transmission Date: 20060218
  Serious: Yes (Hospitalization)
  Sender: FDA-Public Use
  Company Number: US015857

PATIENT
  Age: 36 Year
  Sex: Female
  Weight: 90.7194 kg

DRUGS (4)
  1. ACTIQ [Suspect]
     Indication: BRAIN NEOPLASM BENIGN
     Dosage: 1200 UG QD BUCCAL
     Route: 002
     Dates: start: 20040101
  2. TOPAMAX [Concomitant]
  3. INDERAL [Concomitant]
  4. ELAVIL [Concomitant]

REACTIONS (8)
  - ABDOMINAL PAIN [None]
  - CHOLECYSTITIS INFECTIVE [None]
  - DEHYDRATION [None]
  - DIARRHOEA [None]
  - GASTROINTESTINAL DISORDER [None]
  - NAUSEA [None]
  - PYREXIA [None]
  - VOMITING [None]
